FAERS Safety Report 4683977-9 (Version None)
Quarter: 2005Q2

REPORT INFORMATION
  Report Type: 
  Country: None (occurrence: None)
  Receive Date: 20050607
  Receipt Date: 20050314
  Transmission Date: 20051028
  Serious: Yes (Hospitalization)
  Sender: FDA-Public Use
  Company Number: US-MERCK-0503USA02896

PATIENT
  Age: 63 Year
  Sex: Female
  Weight: 77 kg

DRUGS (10)
  1. VIOXX [Suspect]
     Indication: ARTHRITIS
     Route: 048
     Dates: start: 19990101, end: 20040101
  2. VIOXX [Suspect]
     Indication: INTERVERTEBRAL DISC DEGENERATION
     Route: 048
     Dates: start: 19990101, end: 20040101
  3. TENEX [Concomitant]
     Route: 065
  4. TENEX [Concomitant]
     Route: 065
  5. ACIPHEX [Concomitant]
     Route: 065
  6. ACIPHEX [Concomitant]
     Route: 065
  7. ULTRAM [Concomitant]
     Route: 065
  8. NORVASC [Suspect]
     Route: 065
  9. CLONIDINE [Suspect]
     Route: 065
  10. ZOCOR [Suspect]
     Route: 065

REACTIONS (27)
  - ACUTE CORONARY SYNDROME [None]
  - BLOOD PRESSURE INADEQUATELY CONTROLLED [None]
  - BUNDLE BRANCH BLOCK RIGHT [None]
  - CHEST DISCOMFORT [None]
  - CHEST PAIN [None]
  - CONSTIPATION [None]
  - DIZZINESS [None]
  - DRUG INTOLERANCE [None]
  - DYSLIPIDAEMIA [None]
  - DYSPEPSIA [None]
  - DYSPHAGIA [None]
  - EMOTIONAL DISTRESS [None]
  - ENZYME ABNORMALITY [None]
  - FATIGUE [None]
  - HIATUS HERNIA [None]
  - HYPERLIPIDAEMIA [None]
  - HYPERTENSION [None]
  - HYPERTENSIVE HEART DISEASE [None]
  - HYPOTHYROIDISM [None]
  - JOINT SWELLING [None]
  - MUSCULOSKELETAL DISCOMFORT [None]
  - MYOCARDIAL INFARCTION [None]
  - MYOCARDIAL ISCHAEMIA [None]
  - NAUSEA [None]
  - OEDEMA PERIPHERAL [None]
  - PRURITUS [None]
  - VENTRICULAR DYSFUNCTION [None]
